FAERS Safety Report 7932978-3 (Version None)
Quarter: 2011Q4

REPORT INFORMATION
  Report Type: 
  Country: None (occurrence: None)
  Receive Date: 20111122
  Receipt Date: 20111118
  Transmission Date: 20120403
  Serious: Yes (Death)
  Sender: FDA-Public Use
  Company Number: PHEH2011US008846

PATIENT
  Sex: Male

DRUGS (9)
  1. EXJADE [Suspect]
     Dosage: 500 MG, DAILY
     Route: 048
     Dates: start: 20110405
  2. VITAMIN B6 [Concomitant]
     Dosage: 25 MG, UNK
     Dates: start: 20101217
  3. FOLIC ACID [Concomitant]
     Dosage: 1 MG, UNK
     Dates: start: 20101217
  4. ALLOPURINOL [Concomitant]
     Dosage: 300 MG, UNK
     Dates: start: 20101217
  5. EXJADE [Suspect]
     Indication: MYELODYSPLASTIC SYNDROME
     Dosage: 1000 MG, DAILY
     Route: 048
     Dates: start: 20101217
  6. FLOMAX [Concomitant]
     Dosage: 0.4 MG, UNK
     Dates: start: 20101217
  7. NAPROXEN [Concomitant]
     Dosage: 250 MG, BID
     Route: 048
     Dates: start: 20110824
  8. MIRTAZAPINE [Concomitant]
     Dosage: 15 MG, UNK
     Dates: start: 20101217
  9. VIDAZA [Concomitant]
     Dosage: 100 MG, UNK
     Dates: start: 20101227

REACTIONS (1)
  - GASTROINTESTINAL HAEMORRHAGE [None]
